FAERS Safety Report 5380947-2 (Version None)
Quarter: 2007Q3

REPORT INFORMATION
  Report Type: 
  Country: None (occurrence: None)
  Receive Date: 20070702
  Receipt Date: 20060622
  Transmission Date: 20080115
  Serious: Yes (Hospitalization, Other)
  Sender: FDA-Public Use
  Company Number: SPV1-2006-00148

PATIENT
  Age: 47 Year
  Sex: Male

DRUGS (6)
  1. PENTASA [Suspect]
     Indication: COLITIS ULCERATIVE
     Dosage: 1500 MG DAILY, ORAL
     Route: 048
     Dates: start: 20060410, end: 20060523
  2. LANSOPRAZOLE [Suspect]
     Indication: PEPTIC ULCER
     Dosage: ORAL
     Route: 048
     Dates: start: 20060502, end: 20060516
  3. ZANTAC                  (RANITIDONE HYDROCHLORIDE) [Suspect]
     Indication: PEPTIC ULCER
     Dosage: 100 MG DAILY, INTRAVENOUS
     Route: 042
  4. ROCEPHIN [Suspect]
     Indication: PERITONITIS
     Dosage: 2 G DAILY, INTRAVENOUS
     Route: 042
  5. FUTHAN          (NAFANMOSTAT MESILATE) [Suspect]
     Indication: PANCREATITIS
     Dosage: 20 MG DAILY, INTRAVENOUS
     Route: 042
     Dates: start: 20060515, end: 20060521
  6. PREDISOLONE [Concomitant]

REACTIONS (2)
  - AGRANULOCYTOSIS [None]
  - WHITE BLOOD CELL COUNT DECREASED [None]
